FAERS Safety Report 7269298-9 (Version None)
Quarter: 2011Q1

REPORT INFORMATION
  Report Type: 
  Country: None (occurrence: None)
  Receive Date: 20110124
  Receipt Date: 20110114
  Transmission Date: 20110831
  Serious: Yes (Hospitalization)
  Sender: FDA-Public Use
  Company Number: JP-1184676

PATIENT
  Age: 42 Year
  Sex: Female

DRUGS (3)
  1. VEGAMOX (MOXIFLOXACIN HYDROCHLORIDE) 0.5 % OPHTHALMIC SOLUTION EYE DRO [Suspect]
     Indication: MEIBOMIANITIS
     Dosage: 1 GTT QID OPHTHALMIC
     Route: 047
     Dates: start: 20101227, end: 20110113
  2. HYALEIN (HYALURONATE SODIUM) [Concomitant]
  3. DIQUAFOSOL (DIQUAFOSOL) [Concomitant]

REACTIONS (1)
  - CORNEAL PERFORATION [None]
